FAERS Safety Report 21879443 (Version 1)
Quarter: 2023Q1

REPORT INFORMATION
  Report Type: Report from Study
  Country: EG (occurrence: EG)
  Receive Date: 20230118
  Receipt Date: 20230118
  Transmission Date: 20230417
  Serious: Yes (Other)
  Sender: FDA-Public Use
  Company Number: EG-002147023-NVSC2023EG007084

PATIENT
  Age: 49 Year
  Sex: Female

DRUGS (4)
  1. HYRIMOZ [Suspect]
     Active Substance: ADALIMUMAB-ADAZ
     Indication: Rheumatoid arthritis
     Dosage: 40 MG, EVERY 15 DAYS
     Route: 065
     Dates: start: 202111, end: 202206
  2. LEFLUNOMIDE [Concomitant]
     Active Substance: LEFLUNOMIDE
     Indication: Rheumatoid arthritis
     Dosage: 1 DOSAGE FORM, QD (STARTED 9 YEARS AGO)
     Route: 065
  3. SOLUPRED [Concomitant]
     Indication: Rheumatoid arthritis
     Dosage: 1 DOSAGE FORM, QD (STARTED 9 YEARS AGO)
     Route: 065
  4. CONCOR 5 PLUS [Concomitant]
     Indication: Hypertension
     Dosage: 1 DOSAGE FORM, QD (STARTED 7 YEARS AGO)
     Route: 065

REACTIONS (5)
  - Breast pain [Not Recovered/Not Resolved]
  - Breast fibrosis [Not Recovered/Not Resolved]
  - Fatigue [Not Recovered/Not Resolved]
  - Arthralgia [Not Recovered/Not Resolved]
  - Bone pain [Not Recovered/Not Resolved]

NARRATIVE: CASE EVENT DATE: 20220816
